FAERS Safety Report 20771363 (Version 1)
Quarter: 2022Q2

REPORT INFORMATION
  Report Type: Spontaneous
  Country: CO (occurrence: CO)
  Receive Date: 20220429
  Receipt Date: 20220429
  Transmission Date: 20220720
  Serious: Yes (Hospitalization)
  Sender: FDA-Public Use
  Company Number: CO-BAUSCH-BL-2022-010174

PATIENT
  Age: 40 Year
  Sex: Female

DRUGS (3)
  1. MESALAMINE [Suspect]
     Active Substance: MESALAMINE
     Indication: Abdominal pain upper
     Route: 048
  2. MESALAMINE [Suspect]
     Active Substance: MESALAMINE
     Indication: Abdominal discomfort
  3. MESALAMINE [Suspect]
     Active Substance: MESALAMINE
     Indication: Off label use

REACTIONS (2)
  - Appendicitis [Recovered/Resolved]
  - Off label use [Unknown]
